FAERS Safety Report 6533501-0 (Version None)
Quarter: 2010Q1

REPORT INFORMATION
  Report Type: 
  Country: None (occurrence: None)
  Receive Date: 20100108
  Receipt Date: 20100108
  Transmission Date: 20100710
  Serious: No
  Sender: FDA-Public Use
  Company Number: None

PATIENT
  Age: 65 Year
  Sex: Female
  Weight: 104.3273 kg

DRUGS (1)
  1. ZICAM COLD REMEDY ZICAM ACETICUM 2X ZICAM LLC [Suspect]
     Indication: NASOPHARYNGITIS
     Dosage: 1 TAB EVERY 3 HRS BUCCAL
     Route: 002

REACTIONS (1)
  - AGEUSIA [None]
